FAERS Safety Report 6212237-X (Version None)
Quarter: 2009Q2

REPORT INFORMATION
  Report Type: 
  Country: None (occurrence: None)
  Receive Date: 20090529
  Receipt Date: 20090518
  Transmission Date: 20091009
  Serious: Yes (Disabling)
  Sender: FDA-Public Use
  Company Number: 276953

PATIENT
  Sex: Male

DRUGS (1)
  1. MARCAINE [Suspect]
     Indication: ANALGESIA
     Dosage: INJECTION
     Dates: start: 20030822

REACTIONS (5)
  - CHONDROPATHY [None]
  - JOINT RANGE OF MOTION DECREASED [None]
  - MULTIPLE INJURIES [None]
  - MUSCULOSKELETAL DISORDER [None]
  - PAIN [None]
